FAERS Safety Report 14592617 (Version 1)
Quarter: 2018Q1

REPORT INFORMATION
  Report Type: Spontaneous
  Country: US (occurrence: US)
  Receive Date: 20180302
  Receipt Date: 20180302
  Transmission Date: 20180509
  Serious: Yes (Other)
  Sender: FDA-Public Use
  Company Number: US-ENDO PHARMACEUTICALS INC-2017-003193

PATIENT
  Age: 63 Year
  Sex: Male
  Weight: 85.71 kg

DRUGS (5)
  1. PROSTATA PLUS [Concomitant]
     Indication: SUPPLEMENTATION THERAPY
     Dosage: UNK UNKNOWN, DAILY
     Route: 065
  2. VITAMIN D                          /00107901/ [Concomitant]
     Active Substance: ERGOCALCIFEROL
     Indication: PRODUCT USED FOR UNKNOWN INDICATION
     Dosage: UNK UNKNOWN, UNK
     Route: 065
  3. FISH OIL [Concomitant]
     Active Substance: FISH OIL
     Indication: PRODUCT USED FOR UNKNOWN INDICATION
     Dosage: UNK UNKNOWN, UNKNOWN
     Route: 065
  4. XIAFLEX [Suspect]
     Active Substance: COLLAGENASE CLOSTRIDIUM HISTOLYTICUM
     Dosage: UNK, FIRST SET OF THREE INJECTIONS INTO LEFT PALM
     Route: 026
     Dates: start: 2015
  5. XIAFLEX [Suspect]
     Active Substance: COLLAGENASE CLOSTRIDIUM HISTOLYTICUM
     Indication: DUPUYTREN^S CONTRACTURE
     Dosage: UNK, SECOND SET OF THREE INJECTIONS INTO LEFT PALM
     Route: 026
     Dates: start: 201603, end: 201603

REACTIONS (3)
  - Condition aggravated [Not Recovered/Not Resolved]
  - Drug ineffective [Not Recovered/Not Resolved]
  - Dupuytren^s contracture [Not Recovered/Not Resolved]

NARRATIVE: CASE EVENT DATE: 201603
